FAERS Safety Report 24247568 (Version 1)
Quarter: 2024Q3

REPORT INFORMATION
  Report Type: Spontaneous
  Country: US (occurrence: US)
  Receive Date: 20240826
  Receipt Date: 20240826
  Transmission Date: 20241017
  Serious: Yes (Hospitalization, Other)
  Sender: MICRO LABS
  Company Number: US-862174955-ML2024-04529

PATIENT
  Age: 66 Year
  Sex: Male

DRUGS (1)
  1. APIXABAN [Suspect]
     Active Substance: APIXABAN
     Indication: Anticoagulant therapy

REACTIONS (2)
  - Cardiac tamponade [Recovered/Resolved]
  - Pericardial haemorrhage [Recovered/Resolved]
